FAERS Safety Report 16095356 (Version 1)
Quarter: 2019Q1

REPORT INFORMATION
  Report Type: Other
  Country: CA (occurrence: CA)
  Receive Date: 20190320
  Receipt Date: 20190320
  Transmission Date: 20190418
  Serious: Yes (Other)
  Sender: FDA-Public Use
  Company Number: CA-BECTON DICKINSON-2019BDN00116

PATIENT
  Age: 42 Year
  Sex: Female
  Weight: 81 kg

DRUGS (21)
  1. CHLORHEXIDINE [Suspect]
     Active Substance: CHLORHEXIDINE
  2. TYLENOL [Concomitant]
     Active Substance: ACETAMINOPHEN
  3. PERCOCET [Suspect]
     Active Substance: ACETAMINOPHEN\OXYCODONE HYDROCHLORIDE
  4. REACTINE [CETIRIZINE HYDROCHLORIDE] [Concomitant]
     Active Substance: CETIRIZINE HYDROCHLORIDE
  5. CIMZIA [Suspect]
     Active Substance: CERTOLIZUMAB PEGOL
     Indication: RHEUMATOID ARTHRITIS
     Dosage: 400 MG CYCLICAL
     Route: 058
  6. CIMZIA [Suspect]
     Active Substance: CERTOLIZUMAB PEGOL
     Dosage: 200 MG, 2X/MONTH
     Route: 058
  7. ENBREL [Suspect]
     Active Substance: ETANERCEPT
     Indication: RHEUMATOID ARTHRITIS
     Route: 058
  8. ARAVA [Suspect]
     Active Substance: LEFLUNOMIDE
  9. SIMPONI [Suspect]
     Active Substance: GOLIMUMAB
     Route: 058
  10. COENZYME Q-10 [Concomitant]
  11. IBUPROFEN. [Concomitant]
     Active Substance: IBUPROFEN
  12. VITAMIN C [Concomitant]
     Active Substance: ASCORBIC ACID
  13. NUTRASEA [Concomitant]
  14. ZOPICLONE [Concomitant]
     Active Substance: ZOPICLONE
  15. ACTEMRA [Suspect]
     Active Substance: TOCILIZUMAB
  16. METHOTREXATE. [Suspect]
     Active Substance: METHOTREXATE
  17. ORENCIA [Suspect]
     Active Substance: ABATACEPT
  18. PANTOPRAZOLE SODIUM. [Concomitant]
     Active Substance: PANTOPRAZOLE SODIUM
  19. PREDNISONE. [Concomitant]
     Active Substance: PREDNISONE
  20. HYDROXYCHLOROQUINE [Concomitant]
     Active Substance: HYDROXYCHLOROQUINE
  21. VENTOLIN [Concomitant]
     Active Substance: ALBUTEROL SULFATE

REACTIONS (20)
  - Insomnia [Unknown]
  - Ear pain [Unknown]
  - Pain [Unknown]
  - Rash [Unknown]
  - Abdominal pain upper [Unknown]
  - Joint swelling [Unknown]
  - Body temperature increased [Unknown]
  - Back pain [Unknown]
  - Night sweats [Unknown]
  - Sinusitis [Unknown]
  - Respiratory disorder [Unknown]
  - Muscle spasticity [Unknown]
  - Lower respiratory tract infection [Unknown]
  - Headache [Unknown]
  - Diarrhoea [Unknown]
  - Vomiting [Unknown]
  - Asthenia [Unknown]
  - Urticaria [Unknown]
  - Peripheral swelling [Unknown]
  - Pruritus generalised [Unknown]
